FAERS Safety Report 10093050 (Version 1)
Quarter: 2014Q2

REPORT INFORMATION
  Report Type: Spontaneous
  Country: US (occurrence: US)
  Receive Date: 20140421
  Receipt Date: 20140421
  Transmission Date: 20141212
  Serious: No
  Sender: FDA-Public Use
  Company Number: US-SA-2013SA098517

PATIENT
  Age: 76 Year
  Sex: Male

DRUGS (4)
  1. ALLEGRA [Suspect]
     Indication: HYPERSENSITIVITY
     Dosage: DOSE -- 180 MG / 240 MG
     Route: 048
  2. ALLEGRA [Suspect]
     Indication: SINUS DISORDER
     Dosage: DOSE -- 180 MG / 240 MG
     Route: 048
  3. CLARITIN [Concomitant]
  4. FLONASE [Concomitant]

REACTIONS (1)
  - Drug ineffective [Unknown]
